FAERS Safety Report 21127339 (Version 1)
Quarter: 2022Q3

REPORT INFORMATION
  Report Type: Spontaneous
  Country: PR (occurrence: PR)
  Receive Date: 20220725
  Receipt Date: 20220725
  Transmission Date: 20221026
  Serious: No
  Sender: FDA-Public Use
  Company Number: PR-ABBVIE-21K-131-4131288-00

PATIENT
  Age: 47 Year
  Sex: Female

DRUGS (1)
  1. SYNTHROID [Suspect]
     Active Substance: LEVOTHYROXINE SODIUM
     Indication: Product used for unknown indication
     Route: 048

REACTIONS (1)
  - Abdominal pain upper [Recovered/Resolved]
